FAERS Safety Report 4777020-0 (Version None)
Quarter: 2005Q3

REPORT INFORMATION
  Report Type: 
  Country: None (occurrence: None)
  Receive Date: 20050914
  Receipt Date: 20040723
  Transmission Date: 20060218
  Serious: Yes (Hospitalization)
  Sender: FDA-Public Use
  Company Number: 163-20785-04070569

PATIENT
  Age: 51 Year
  Sex: Male

DRUGS (1)
  1. THALOMID [Suspect]
     Indication: MULTIPLE MYELOMA
     Dosage: 200 MG, DAILY, ORAL
     Route: 048
     Dates: start: 20040705, end: 20040701

REACTIONS (5)
  - ANOREXIA [None]
  - ASTHENIA [None]
  - INCOHERENT [None]
  - MEDICATION ERROR [None]
  - SOMNOLENCE [None]
